FAERS Safety Report 13095558 (Version 3)
Quarter: 2019Q1

REPORT INFORMATION
  Report Type: Spontaneous
  Country: GB (occurrence: GB)
  Receive Date: 20170108
  Receipt Date: 20190312
  Transmission Date: 20190417
  Serious: Yes (Other)
  Sender: FDA-Public Use
  Company Number: GB-MYLANLABS-2017M1000795

PATIENT
  Age: 64 Year
  Sex: Male

DRUGS (2)
  1. CLOZARIL [Suspect]
     Active Substance: CLOZAPINE
     Indication: SCHIZOPHRENIA
     Dosage: UNK
     Route: 048
     Dates: start: 20000607
  2. CLOZARIL [Suspect]
     Active Substance: CLOZAPINE
     Dosage: UNK
     Route: 048
     Dates: start: 20010701

REACTIONS (3)
  - Neutrophilia [Not Recovered/Not Resolved]
  - Leukocytosis [Not Recovered/Not Resolved]
  - Platelet count increased [Unknown]

NARRATIVE: CASE EVENT DATE: 20170103
